FAERS Safety Report 6402607-9 (Version None)
Quarter: 2009Q4

REPORT INFORMATION
  Report Type: 
  Country: None (occurrence: None)
  Receive Date: 20091009
  Receipt Date: 20091005
  Transmission Date: 20100525
  Serious: Yes (Life-Threatening, Hospitalization, Other)
  Sender: FDA-Public Use
  Company Number: LTI2009A00260

PATIENT
  Age: 43 Year
  Sex: Female

DRUGS (9)
  1. ACTOS [Suspect]
     Indication: INSULIN-REQUIRING TYPE 2 DIABETES MELLITUS
     Dosage: 30 MG (30 MG, 1 IN 1 D)
     Route: 048
     Dates: start: 20081210, end: 20090211
  2. STAGID  (METFORMIN EMBONATE) [Concomitant]
  3. LEVEMIR [Concomitant]
  4. NOVOLOG [Concomitant]
  5. PAROXETINE HYDROCHLORIDE [Concomitant]
  6. BISOPROLOL FUMARATE [Concomitant]
  7. MICARDIA PLUS (HYDROCHLOROTHIAZIDE, TELMISARTAN) [Concomitant]
  8. LERCANIDIPINE [Concomitant]
  9. ATORVASTATIN CALCIUM [Concomitant]

REACTIONS (4)
  - ACUTE PULMONARY OEDEMA [None]
  - BLOOD POTASSIUM DECREASED [None]
  - HYPERTENSIVE CRISIS [None]
  - PHAEOCHROMOCYTOMA [None]
